FAERS Safety Report 7009228-8 (Version None)
Quarter: 2010Q3

REPORT INFORMATION
  Report Type: 
  Country: None (occurrence: None)
  Receive Date: 20100923
  Receipt Date: 20100910
  Transmission Date: 20110219
  Serious: Yes (Hospitalization)
  Sender: FDA-Public Use
  Company Number: IT-RANBAXY-2010RR-38232

PATIENT
  Sex: Male

DRUGS (1)
  1. ATENOLOL [Suspect]
     Dosage: UNK

REACTIONS (1)
  - NODAL ARRHYTHMIA [None]
